FAERS Safety Report 13122546 (Version 1)
Quarter: 2017Q1

REPORT INFORMATION
  Report Type: Spontaneous
  Country: SE (occurrence: SE)
  Receive Date: 20170117
  Receipt Date: 20170117
  Transmission Date: 20170428
  Serious: Yes (Other)
  Sender: FDA-Public Use
  Company Number: SE-TEVA-729575ISR

PATIENT
  Age: 74 Year
  Sex: Female

DRUGS (2)
  1. DONEPEZIL. [Suspect]
     Active Substance: DONEPEZIL
     Route: 048
  2. DONEPEZIL. [Suspect]
     Active Substance: DONEPEZIL
     Route: 048

REACTIONS (1)
  - Sexually inappropriate behaviour [Recovered/Resolved]
